FAERS Safety Report 4751343-3 (Version None)
Quarter: 2005Q3

REPORT INFORMATION
  Report Type: 
  Country: None (occurrence: None)
  Receive Date: 20050823
  Receipt Date: 20050823
  Transmission Date: 20060218
  Serious: No
  Sender: FDA-Public Use
  Company Number: None

PATIENT
  Age: 28 Year
  Sex: Female
  Weight: 56.246 kg

DRUGS (3)
  1. CLARITHROMYCIN [Suspect]
     Indication: HELICOBACTER INFECTION
     Dosage: 500 MG BID PO
     Route: 048
     Dates: start: 20050809, end: 20050825
  2. OMEPRAZOLE [Concomitant]
  3. AMOXICILLIN [Concomitant]

REACTIONS (1)
  - HALLUCINATION [None]
